FAERS Safety Report 7269569-6 (Version None)
Quarter: 2011Q1

REPORT INFORMATION
  Report Type: 
  Country: None (occurrence: None)
  Receive Date: 20110202
  Receipt Date: 20110131
  Transmission Date: 20110831
  Serious: Yes (Life-Threatening, Hospitalization)
  Sender: FDA-Public Use
  Company Number: DE-SANOFI-AVENTIS-2011SA005859

PATIENT
  Age: 84 Year
  Sex: Female
  Weight: 60 kg

DRUGS (4)
  1. BELOC ZOK [Concomitant]
     Route: 048
  2. ARAVA [Suspect]
     Dosage: 1X10MG
     Route: 048
  3. TORSEMIDE [Concomitant]
     Route: 065
  4. DECORTIN [Concomitant]
     Indication: ARTHRITIS
     Route: 065

REACTIONS (3)
  - BLOOD BILIRUBIN INCREASED [None]
  - TRANSAMINASES INCREASED [None]
  - JAUNDICE [None]
